FAERS Safety Report 23391924 (Version 2)
Quarter: 2024Q4

REPORT INFORMATION
  Report Type: Spontaneous
  Country: FR (occurrence: FR)
  Receive Date: 20240111
  Receipt Date: 20241226
  Transmission Date: 20250115
  Serious: Yes (Other)
  Sender: ALEXION PHARMACEUTICALS
  Company Number: 2024A004416

PATIENT
  Age: 82 Year

DRUGS (4)
  1. TAGRISSO [Suspect]
     Active Substance: OSIMERTINIB
     Dosage: 80 MILLIGRAM, UNK
  2. TAGRISSO [Suspect]
     Active Substance: OSIMERTINIB
     Dosage: 80 MILLIGRAM, UNK
     Route: 048
  3. TAGRISSO [Suspect]
     Active Substance: OSIMERTINIB
     Dosage: 80 MILLIGRAM, UNK
  4. TAGRISSO [Suspect]
     Active Substance: OSIMERTINIB
     Dosage: 80 MILLIGRAM, UNK
     Route: 048

REACTIONS (19)
  - Visual acuity reduced [Unknown]
  - Muscle atrophy [Unknown]
  - Ocular discomfort [Unknown]
  - Interstitial lung disease [Unknown]
  - General physical health deterioration [Unknown]
  - Arrhythmia [Unknown]
  - Alopecia [Unknown]
  - Dry skin [Unknown]
  - Frostbite [Unknown]
  - Balance disorder [Unknown]
  - Haematoma [Unknown]
  - Skin discolouration [Unknown]
  - Cognitive disorder [Unknown]
  - Fatigue [Unknown]
  - Premature ageing [Unknown]
  - Muscular weakness [Unknown]
  - Hepatic function abnormal [Unknown]
  - Pyrexia [Unknown]
  - Amnesia [Unknown]
